FAERS Safety Report 5397592-5 (Version None)
Quarter: 2007Q3

REPORT INFORMATION
  Report Type: 
  Country: None (occurrence: None)
  Receive Date: 20070723
  Receipt Date: 20070723
  Transmission Date: 20080115
  Serious: Yes (Other)
  Sender: FDA-Public Use
  Company Number: None

PATIENT
  Age: 31 Year
  Sex: Female
  Weight: 81.6475 kg

DRUGS (2)
  1. ZOLADEX [Suspect]
     Indication: BREAST CANCER
     Dosage: 10.8  EVERY 3 MONTHS  SQ
     Route: 058
     Dates: start: 20040401, end: 20060501
  2. RADIATION [Concomitant]

REACTIONS (2)
  - BREAST CANCER METASTATIC [None]
  - NON-HODGKIN'S LYMPHOMA [None]
